FAERS Safety Report 16853843 (Version 1)
Quarter: 2019Q3

REPORT INFORMATION
  Report Type: Spontaneous
  Country: US (occurrence: US)
  Receive Date: 20190926
  Receipt Date: 20190926
  Transmission Date: 20191005
  Serious: Yes (Hospitalization)
  Sender: FDA-Public Use
  Company Number: US-BIOGEN-2019BI00788012

PATIENT
  Sex: Female

DRUGS (1)
  1. AVONEX [Suspect]
     Active Substance: INTERFERON BETA-1A
     Indication: MULTIPLE SCLEROSIS
     Route: 030
     Dates: start: 20020726

REACTIONS (4)
  - Injection site infection [Recovered/Resolved]
  - Streptococcal abscess [Not Recovered/Not Resolved]
  - Influenza like illness [Recovered/Resolved]
  - Injection site inflammation [Unknown]
